FAERS Safety Report 8881165 (Version 1)
Quarter: 2012Q4

REPORT INFORMATION
  Report Type: 
  Country: AU (occurrence: AU)
  Receive Date: 20121031
  Receipt Date: 20121031
  Transmission Date: 20130627
  Serious: Yes (Other)
  Sender: FDA-Public Use
  Company Number: PHHY2012AU087223

PATIENT
  Age: 74 Year
  Sex: Male

DRUGS (10)
  1. ACLASTA [Suspect]
     Indication: OSTEOPOROSIS
     Dosage: 5 mg
     Route: 042
     Dates: start: 20120925
  2. CALTRATE [Concomitant]
     Indication: OSTEOPOROSIS
     Dosage: 2 DF, QD
     Route: 048
  3. COVERSYL ARGININE [Concomitant]
     Indication: HYPERTENSION
     Dosage: 5 mg, QD
     Route: 048
  4. GLUCOSAMINE HYDROCHLORIDE [Concomitant]
     Indication: OSTEOARTHRITIS
     Dosage: 750 mg, BID
  5. LIPITOR [Concomitant]
     Indication: HYPERCHOLESTEROLAEMIA
     Dosage: 20 mg, QD
     Route: 048
  6. MOBIC [Concomitant]
     Indication: OSTEOARTHRITIS
     Dosage: 15 mg, QD, PRN
     Route: 048
  7. VALIUM [Concomitant]
     Indication: SCIATICA
     Dosage: 2 mg, 1nocte
     Route: 048
  8. ATORVASTATIN [Concomitant]
     Dosage: 10 mg, UNK
  9. PERINDOPRIL [Concomitant]
     Dosage: 5 mg, UNK
  10. VITAMIN D [Concomitant]

REACTIONS (4)
  - Myositis [Unknown]
  - Musculoskeletal pain [Recovered/Resolved]
  - Pain [Recovered/Resolved]
  - Myalgia [Unknown]
